FAERS Safety Report 5458226-4 (Version None)
Quarter: 2007Q3

REPORT INFORMATION
  Report Type: 
  Country: None (occurrence: None)
  Receive Date: 20070919
  Receipt Date: 20070316
  Transmission Date: 20080115
  Serious: Yes (Other)
  Sender: FDA-Public Use
  Company Number: US-ASTRAZENECA-2007UW05508

PATIENT
  Age: 45 Year
  Sex: Male
  Weight: 83.9 kg

DRUGS (6)
  1. SEROQUEL [Suspect]
     Indication: BIPOLAR DISORDER
     Route: 048
     Dates: start: 20060301
  2. LEXAPRO [Concomitant]
  3. GEODON [Concomitant]
  4. TRILEPTAL [Concomitant]
  5. RISPERDAL [Concomitant]
  6. ZYPREXA [Concomitant]

REACTIONS (2)
  - AGGRESSION [None]
  - AKATHISIA [None]
